FAERS Safety Report 13589093 (Version 9)
Quarter: 2024Q3

REPORT INFORMATION
  Report Type: Spontaneous
  Country: JP (occurrence: JP)
  Receive Date: 20170529
  Receipt Date: 20240817
  Transmission Date: 20241017
  Serious: Yes (Life-Threatening, Hospitalization, Other)
  Sender: ROCHE
  Company Number: JP-ROCHE-1847093

PATIENT
  Sex: Male
  Weight: 54.0 kg

DRUGS (21)
  1. RITUXAN [Suspect]
     Active Substance: RITUXIMAB
     Indication: Systemic lupus erythematosus
     Route: 041
     Dates: start: 20160908, end: 20160908
  2. RITUXAN [Suspect]
     Active Substance: RITUXIMAB
     Indication: Haemophagocytic lymphohistiocytosis
     Route: 041
     Dates: start: 20160916, end: 20160916
  3. RITUXAN [Suspect]
     Active Substance: RITUXIMAB
     Route: 041
     Dates: start: 20160929, end: 20160929
  4. RITUXAN [Suspect]
     Active Substance: RITUXIMAB
     Route: 041
     Dates: start: 20161006, end: 20161006
  5. RITUXAN [Suspect]
     Active Substance: RITUXIMAB
     Dosage: 4 COURSES
     Route: 042
  6. CELLCEPT [Suspect]
     Active Substance: MYCOPHENOLATE MOFETIL
     Indication: Systemic lupus erythematosus
     Dosage: 1000-3000 MG FRACTIONATION DOSE UNCERTAIN, FREQUENCY AND DOSE INTERVAL UNCERTAINTIES
     Route: 048
     Dates: start: 20161019
  7. CELLCEPT [Suspect]
     Active Substance: MYCOPHENOLATE MOFETIL
     Route: 048
     Dates: start: 20161123, end: 20170427
  8. PREDONINE [Suspect]
     Active Substance: PREDNISOLONE
     Indication: Systemic lupus erythematosus
     Dosage: 12-20 MG, FRACTIONATION DOSE UNCERTAIN, FREQUENCY AND DOSE INTERVAL UNCERTAINTY
     Route: 048
     Dates: start: 20150619, end: 20160314
  9. PREDONINE [Suspect]
     Active Substance: PREDNISOLONE
     Dosage: 60 MG, FRACTIONATION DOSE UNCERTAIN, FREQUENCY AND DOSE INTERVAL UNCERTAINTY
     Route: 048
     Dates: start: 20160317, end: 20160404
  10. PREDONINE [Suspect]
     Active Substance: PREDNISOLONE
     Dosage: 5-10 MG, FRACTIONATION DOSE UNCERTAIN, FREQUENCY AND DOSE INTERVAL UNCERTAINTY
     Route: 048
     Dates: start: 20170127
  11. METHYLPREDNISOLONE SODIUM SUCCINATE [Suspect]
     Active Substance: METHYLPREDNISOLONE SODIUM SUCCINATE
     Indication: Systemic lupus erythematosus
     Dosage: FRACTIONATION DOSE UNCERTAIN, FREQUENCY AND DOSE INTERVAL UNCERTAINTY
     Route: 041
     Dates: start: 20160314, end: 20160316
  12. METHYLPREDNISOLONE SODIUM SUCCINATE [Suspect]
     Active Substance: METHYLPREDNISOLONE SODIUM SUCCINATE
     Dosage: FRACTIONATION DOSE UNCERTAIN, FREQUENCY AND DOSE INTERVAL UNCERTAINTY
     Route: 041
  13. BETAMETHASONE [Suspect]
     Active Substance: BETAMETHASONE\BETAMETHASONE DIPROPIONATE
     Indication: Systemic lupus erythematosus
     Dosage: 1.00-6.5 FRACTIONATION DOSE UNCERTAIN, FREQUENCY AND DOSE INTERVAL UNCERTAINTY
     Route: 048
     Dates: start: 20160405, end: 20170113
  14. CYCLOPHOSPHAMIDE [Suspect]
     Active Substance: CYCLOPHOSPHAMIDE
     Indication: Systemic lupus erythematosus
     Dosage: 2 COURSES
     Route: 042
  15. CYCLOPHOSPHAMIDE [Suspect]
     Active Substance: CYCLOPHOSPHAMIDE
     Route: 042
     Dates: end: 20160512
  16. CYCLOSPORINE [Suspect]
     Active Substance: CYCLOSPORINE
     Indication: Systemic lupus erythematosus
     Route: 042
  17. CYCLOSPORINE [Suspect]
     Active Substance: CYCLOSPORINE
     Route: 065
  18. TACROLIMUS [Suspect]
     Active Substance: TACROLIMUS
     Indication: Systemic lupus erythematosus
     Dosage: 1-2MG, FRACTIONATION DOSE UNCERTAIN, FREQUENCY AND DOSE INTERVAL UNCERTAINTY
     Route: 048
     Dates: start: 20170217, end: 20170324
  19. VONOPRAZAN FUMARATE [Concomitant]
     Active Substance: VONOPRAZAN FUMARATE
     Route: 065
     Dates: start: 2016
  20. LEVETIRACETAM [Concomitant]
     Active Substance: LEVETIRACETAM
     Route: 048
     Dates: start: 201609
  21. LEVETIRACETAM [Concomitant]
     Active Substance: LEVETIRACETAM
     Route: 065
     Dates: start: 201609

REACTIONS (4)
  - Progressive multifocal leukoencephalopathy [Recovered/Resolved]
  - Off label use [Unknown]
  - Urosepsis [Recovered/Resolved]
  - Posterior reversible encephalopathy syndrome [Recovered/Resolved]
